FAERS Safety Report 8892192 (Version 1)
Quarter: 2012Q4

REPORT INFORMATION
  Report Type: Spontaneous
  Country: US (occurrence: None)
  Receive Date: 20121105
  Receipt Date: 20121105
  Transmission Date: 20130627
  Serious: Yes (Other)
  Sender: FDA-Public Use
  Company Number: None

PATIENT
  Age: 62 Year
  Sex: Female
  Weight: 61.24 kg

DRUGS (1)
  1. MECLOFENAMATE SODIUM [Suspect]
     Indication: ADHESIVE CAPSULITIS
     Dosage: ONE CAP 3X PER DAY
     Route: 048
     Dates: start: 20121102, end: 20121102

REACTIONS (2)
  - Palpitations [None]
  - Heart rate increased [None]
